FAERS Safety Report 8775638 (Version 4)
Quarter: 2012Q4

REPORT INFORMATION
  Report Type: Report from Study
  Country: US (occurrence: US)
  Receive Date: 20120909
  Receipt Date: 20121112
  Transmission Date: 20130627
  Serious: Yes (Hospitalization, Other)
  Sender: FDA-Public Use
  Company Number: US-ABBOTT-12P-163-0975095-00

PATIENT
  Sex: Male
  Weight: 52.66 kg

DRUGS (4)
  1. HUMIRA [Suspect]
     Indication: CROHN^S DISEASE
     Dosage: HUMIRA Pen
     Route: 050
     Dates: start: 20110513, end: 201205
  2. HUMIRA [Suspect]
     Dosage: Humira PFS
     Route: 058
     Dates: start: 201205
  3. PROBIOTIC [Concomitant]
     Indication: CROHN^S DISEASE
  4. MULTIVITAMIN [Concomitant]
     Indication: VITAMIN SUPPLEMENTATION

REACTIONS (4)
  - Small intestinal resection [Recovered/Resolved]
  - Drug ineffective [Recovered/Resolved]
  - Ileal stenosis [Recovered/Resolved]
  - Crohn^s disease [Unknown]
